FAERS Safety Report 8319827-9 (Version None)
Quarter: 2012Q2

REPORT INFORMATION
  Report Type: 
  Country: None (occurrence: None)
  Receive Date: 20120427
  Receipt Date: 20120418
  Transmission Date: 20120825
  Serious: Yes (Other)
  Sender: FDA-Public Use
  Company Number: US-VERTEX PHARMACEUTICALS INC.-AE-2012-005625

PATIENT
  Sex: Female

DRUGS (3)
  1. INCIVEK [Suspect]
     Indication: HEPATITIS C
     Dates: start: 20120204, end: 20120402
  2. POLYETHYLENE GLYCOL [Concomitant]
     Indication: HEPATITIS C
     Dates: start: 20120204, end: 20120403
  3. RIBA [Concomitant]
     Indication: HEPATITIS C
     Dates: start: 20120204, end: 20120403

REACTIONS (3)
  - RASH [None]
  - GENERALISED OEDEMA [None]
  - EYE SWELLING [None]
